FAERS Safety Report 13668460 (Version 7)
Quarter: 2021Q1

REPORT INFORMATION
  Report Type: Report from Study
  Country: IN (occurrence: IN)
  Receive Date: 20170620
  Receipt Date: 20210331
  Transmission Date: 20210419
  Serious: Yes (Hospitalization, Other)
  Sender: FDA-Public Use
  Company Number: IN-INCYTE CORPORATION-2017IN004783

PATIENT

DRUGS (10)
  1. JAKAVI [Suspect]
     Active Substance: RUXOLITINIB
     Indication: PRIMARY MYELOFIBROSIS
     Dosage: 10 MG, QD
     Route: 048
     Dates: start: 20170425
  2. JAKAVI [Suspect]
     Active Substance: RUXOLITINIB
     Dosage: 20 MG, BID
     Route: 048
  3. JAKAVI [Suspect]
     Active Substance: RUXOLITINIB
     Dosage: 10 MG, BID
     Route: 048
     Dates: start: 20190827
  4. JAKAVI [Suspect]
     Active Substance: RUXOLITINIB
     Dosage: 30 MG (20 MG IN MORNING AND 10 MG IN EVENING)
     Route: 048
  5. ULTRACET [Concomitant]
     Active Substance: ACETAMINOPHEN\TRAMADOL HYDROCHLORIDE
     Indication: PRODUCT USED FOR UNKNOWN INDICATION
     Dosage: UNK
     Route: 065
  6. WYSOLONE [Concomitant]
     Active Substance: PREDNISOLONE
     Indication: PRODUCT USED FOR UNKNOWN INDICATION
     Dosage: 5 MG, QD
     Route: 065
  7. FOLVITE [FOLIC ACID] [Concomitant]
     Indication: PRODUCT USED FOR UNKNOWN INDICATION
     Dosage: 5 MG, BID
     Route: 048
     Dates: start: 2017
  8. STEMETIL [PROCHLORPERAZINE] [Concomitant]
     Active Substance: PROCHLORPERAZINE
     Indication: VERTIGO
     Dosage: UNK
     Route: 048
  9. JAKAVI [Suspect]
     Active Substance: RUXOLITINIB
     Dosage: 15 MG, QD (5MG MORNING AND 10MG EVENING)
     Route: 065
     Dates: start: 20180514
  10. SHELCAL [Concomitant]
     Active Substance: CALCIUM CARBONATE\CHOLECALCIFEROL
     Indication: PRODUCT USED FOR UNKNOWN INDICATION
     Dosage: UNK UNK, BID
     Route: 048
     Dates: start: 201706

REACTIONS (25)
  - Therapeutic response decreased [Unknown]
  - Pyrexia [Recovered/Resolved]
  - Total lung capacity increased [Not Recovered/Not Resolved]
  - Asthenia [Not Recovered/Not Resolved]
  - Fatigue [Not Recovered/Not Resolved]
  - Thrombocytopenia [Not Recovered/Not Resolved]
  - Sleep deficit [Not Recovered/Not Resolved]
  - Anaemia [Recovered/Resolved]
  - Hyperthermia [Recovered/Resolved]
  - Pruritus [Not Recovered/Not Resolved]
  - Haemoglobin decreased [Not Recovered/Not Resolved]
  - Night sweats [Not Recovered/Not Resolved]
  - Pain [Not Recovered/Not Resolved]
  - Arthralgia [Recovering/Resolving]
  - Product use issue [Unknown]
  - Full blood count decreased [Not Recovered/Not Resolved]
  - Pancytopenia [Unknown]
  - Product prescribing error [Unknown]
  - White blood cell count increased [Recovered/Resolved]
  - White blood cell count decreased [Not Recovered/Not Resolved]
  - Cough [Recovering/Resolving]
  - Vertigo [Recovering/Resolving]
  - Asthenia [Recovered/Resolved]
  - Platelet count decreased [Not Recovered/Not Resolved]
  - Weight decreased [Recovering/Resolving]

NARRATIVE: CASE EVENT DATE: 201705
